FAERS Safety Report 4866614-X (Version None)
Quarter: 2005Q4

REPORT INFORMATION
  Report Type: 
  Country: None (occurrence: None)
  Receive Date: 20051221
  Receipt Date: 20051208
  Transmission Date: 20060501
  Serious: Yes (Other)
  Sender: FDA-Public Use
  Company Number: 2005111362

PATIENT
  Sex: Male

DRUGS (6)
  1. VIAGRA [Suspect]
     Indication: ERECTILE DYSFUNCTION
  2. ALBUTEROL [Concomitant]
  3. COMBIVENT [Concomitant]
  4. AZMACORT [Concomitant]
  5. ENALAPRIL [Concomitant]
  6. FUROSEMIDE [Concomitant]

REACTIONS (4)
  - DRUG EFFECT DECREASED [None]
  - OPTIC ISCHAEMIC NEUROPATHY [None]
  - PROSTATE EXAMINATION ABNORMAL [None]
  - PULMONARY MASS [None]
